FAERS Safety Report 4528762-3 (Version None)
Quarter: 2004Q4

REPORT INFORMATION
  Report Type: 
  Country: None (occurrence: None)
  Receive Date: 20041214
  Receipt Date: 20041207
  Transmission Date: 20050328
  Serious: Yes (Death, Life-Threatening, Hospitalization)
  Sender: FDA-Public Use
  Company Number: STA-AE-04-MTX-545

PATIENT
  Age: 73 Year
  Sex: Male

DRUGS (6)
  1. RHEUMATREX [Suspect]
     Indication: RHEUMATOID ARTHRITIS
     Dosage: 6 MG 1X PER 1 WK, ORAL
     Route: 048
     Dates: start: 20030916, end: 20040908
  2. PREDNISOLONE [Concomitant]
  3. LOXONIN (LOXOPROFEN SODIUM) [Concomitant]
  4. TIZANIDINE HCL [Concomitant]
  5. SHIOSOL (SODIUM AUROTHIOMALATE) [Concomitant]
  6. LIMETHASONE (DEXAMETHASONE PALMITATE/GLYCEROL/LECITHIN/SOYA OIL) [Concomitant]

REACTIONS (11)
  - AGRANULOCYTOSIS [None]
  - BLOOD BETA-D-GLUCAN INCREASED [None]
  - CONDITION AGGRAVATED [None]
  - DISSEMINATED INTRAVASCULAR COAGULATION [None]
  - GENERAL PHYSICAL HEALTH DETERIORATION [None]
  - HAEMOPTYSIS [None]
  - INTERSTITIAL LUNG DISEASE [None]
  - MULTI-ORGAN FAILURE [None]
  - PNEUMOCYSTIS CARINII PNEUMONIA [None]
  - PULMONARY TUBERCULOSIS [None]
  - THROMBOCYTOPENIA [None]
